FAERS Safety Report 19573287 (Version 2)
Quarter: 2022Q2

REPORT INFORMATION
  Report Type: Spontaneous
  Country: GB (occurrence: GB)
  Receive Date: 20210717
  Receipt Date: 20220405
  Transmission Date: 20220721
  Serious: Yes (Other)
  Sender: FDA-Public Use
  Company Number: GB-MHRA-EYC 00255613

PATIENT
  Age: 17 Year
  Sex: Female
  Weight: 76.2 kg

DRUGS (1)
  1. SERTRALINE [Suspect]
     Active Substance: SERTRALINE HYDROCHLORIDE
     Indication: Ill-defined disorder
     Dosage: 30 MILLIGRAM
     Route: 048
     Dates: start: 20201101, end: 20210101

REACTIONS (1)
  - Intrusive thoughts [Not Recovered/Not Resolved]

NARRATIVE: CASE EVENT DATE: 20201102
